FAERS Safety Report 9351052 (Version 2)
Quarter: 2014Q1

REPORT INFORMATION
  Report Type: Spontaneous
  Country: US (occurrence: US)
  Receive Date: 20130617
  Receipt Date: 20140312
  Transmission Date: 20141002
  Serious: Yes (Hospitalization, Other)
  Sender: FDA-Public Use
  Company Number: US-009507513-1306USA004724

PATIENT
  Sex: Male
  Weight: 128.35 kg

DRUGS (7)
  1. PROSCAR [Suspect]
     Indication: PROSTATIC SPECIFIC ANTIGEN INCREASED
     Dosage: 5 MG, UNK
     Route: 048
     Dates: start: 2008, end: 2009
  2. FINASTERIDE [Suspect]
     Indication: PROSTATIC SPECIFIC ANTIGEN INCREASED
     Dosage: 5 MG, QD
     Route: 048
     Dates: start: 2009, end: 2012
  3. PROPECIA [Suspect]
     Dosage: UNK
     Route: 048
  4. TAMSULOSIN HYDROCHLORIDE [Concomitant]
     Indication: DYSURIA
     Dosage: 0.4 MG, UNK
  5. FLOMAX (TAMSULOSIN HYDROCHLORIDE) [Concomitant]
     Indication: DYSURIA
     Dosage: 0.4 MG, UNK
  6. CIALIS [Concomitant]
     Indication: ERECTILE DYSFUNCTION
  7. LANTUS [Concomitant]
     Indication: TYPE 2 DIABETES MELLITUS
     Dosage: 55, UNK, HS

REACTIONS (34)
  - Prostate cancer [Unknown]
  - Cardiac failure congestive [Unknown]
  - Ischaemic cardiomyopathy [Unknown]
  - Implantable defibrillator insertion [Unknown]
  - Acute myocardial infarction [Unknown]
  - Cardiac failure congestive [Unknown]
  - Coronary angioplasty [Unknown]
  - Haematoma [Unknown]
  - Sleep apnoea syndrome [Unknown]
  - Dyspnoea [Not Recovered/Not Resolved]
  - Osteoarthritis [Unknown]
  - Anxiety [Unknown]
  - Atrial fibrillation [Unknown]
  - Diabetic neuropathy [Unknown]
  - Productive cough [Unknown]
  - Ventricular tachycardia [Unknown]
  - Eye disorder [Unknown]
  - Back pain [Unknown]
  - Sinus disorder [Unknown]
  - Fatigue [Unknown]
  - Diarrhoea [Unknown]
  - Constipation [Unknown]
  - Haemorrhoids [Unknown]
  - Chest pain [Unknown]
  - Varicose vein [Unknown]
  - Palpitations [Unknown]
  - Hydrocele [Unknown]
  - Vitamin D deficiency [Unknown]
  - Bursitis [Unknown]
  - Sexual dysfunction [Not Recovered/Not Resolved]
  - Depression [Unknown]
  - Breast pain [Unknown]
  - Erectile dysfunction [Not Recovered/Not Resolved]
  - Gynaecomastia [Unknown]
